FAERS Safety Report 12443448 (Version 4)
Quarter: 2016Q3

REPORT INFORMATION
  Report Type: Spontaneous
  Country: US (occurrence: US)
  Receive Date: 20160607
  Receipt Date: 20160713
  Transmission Date: 20161109
  Serious: No
  Sender: FDA-Public Use
  Company Number: US-BIOGEN-2016BI00244236

PATIENT
  Age: 59 Year
  Sex: Male

DRUGS (2)
  1. TYSABRI [Suspect]
     Active Substance: NATALIZUMAB
     Indication: MULTIPLE SCLEROSIS
     Route: 042
     Dates: start: 20111031, end: 20130422
  2. TYSABRI [Suspect]
     Active Substance: NATALIZUMAB
     Route: 042
     Dates: start: 20140421, end: 20160427

REACTIONS (4)
  - Gastroenteritis [Unknown]
  - Depression [Unknown]
  - Urinary tract infection [Recovered/Resolved]
  - Neurological decompensation [Unknown]

NARRATIVE: CASE EVENT DATE: 201604
